FAERS Safety Report 6075996-5 (Version None)
Quarter: 2009Q1

REPORT INFORMATION
  Report Type: 
  Country: None (occurrence: None)
  Receive Date: 20090212
  Receipt Date: 20090202
  Transmission Date: 20090719
  Serious: Yes (Other)
  Sender: FDA-Public Use
  Company Number: US-PFIZER INC-2009165393

PATIENT
  Sex: Male

DRUGS (8)
  1. CAVERJECT [Suspect]
     Dosage: 40 UG, UNK
     Dates: start: 20090131
  2. GLUCOPHAGE [Concomitant]
     Dosage: UNK
  3. BYETTA [Concomitant]
     Dosage: UNK
  4. ANDROGEL [Concomitant]
     Dosage: UNK
  5. TOPROL-XL [Concomitant]
     Dosage: UNK
  6. AVANDIA [Concomitant]
     Dosage: UNK
  7. FINASTERIDE [Concomitant]
     Dosage: UNK
  8. NORVASC [Concomitant]
     Dosage: UNK

REACTIONS (4)
  - HAEMATOMA [None]
  - PAIN [None]
  - SWELLING [None]
  - THROMBOSIS [None]
